FAERS Safety Report 24745336 (Version 2)
Quarter: 2025Q1

REPORT INFORMATION
  Report Type: Report from Study
  Country: AU (occurrence: AU)
  Receive Date: 20241217
  Receipt Date: 20250110
  Transmission Date: 20250409
  Serious: Yes (Hospitalization)
  Sender: ABBVIE
  Company Number: AU-ABBVIE-6049691

PATIENT
  Age: 75 Year
  Sex: Male

DRUGS (1)
  1. SKYRIZI [Suspect]
     Active Substance: RISANKIZUMAB-RZAA
     Indication: Psoriasis
     Route: 058
     Dates: start: 20191019

REACTIONS (3)
  - Gastrointestinal infection [Recovered/Resolved]
  - Psoriasis [Unknown]
  - Pneumonia mycoplasmal [Recovered/Resolved]

NARRATIVE: CASE EVENT DATE: 20241027
